FAERS Safety Report 8686628 (Version 7)
Quarter: 2018Q4

REPORT INFORMATION
  Report Type: Spontaneous
  Country: BR (occurrence: BR)
  Receive Date: 20120727
  Receipt Date: 20181011
  Transmission Date: 20190205
  Serious: Yes (Hospitalization, Other)
  Sender: FDA-Public Use
  Company Number: BR-AMGEN-BRASP2012045203

PATIENT
  Age: 51 Year
  Sex: Female
  Weight: 83 kg

DRUGS (20)
  1. ENBREL [Suspect]
     Active Substance: ETANERCEPT
     Dosage: 50 MG, WEEKLY
     Route: 058
     Dates: start: 2012, end: 201206
  2. NIMESULIDE [Concomitant]
     Active Substance: NIMESULIDE
     Dosage: STRENGTH 50 MG
  3. PARACETAMOL [Concomitant]
     Active Substance: ACETAMINOPHEN
     Dosage: UNK
  4. METICORTEN [Concomitant]
     Active Substance: PREDNISONE
     Dosage: UNK
  5. LOSARTAN. [Concomitant]
     Active Substance: LOSARTAN
     Indication: HYPERTENSION
     Dosage: 50 MG, BID
     Route: 048
  6. FOLIC ACID. [Concomitant]
     Active Substance: FOLIC ACID
     Dosage: UNK
  7. SIMVASTATIN. [Concomitant]
     Active Substance: SIMVASTATIN
     Dosage: 1 TABLET (UNSPECIFIED DOSE), 1X/DAY
     Route: 048
  8. VICTOZA [Concomitant]
     Active Substance: LIRAGLUTIDE
     Dosage: 0.6 IU, DAILY
     Route: 058
  9. ENBREL [Suspect]
     Active Substance: ETANERCEPT
     Indication: RHEUMATOID ARTHRITIS
     Dosage: UNK
     Route: 058
     Dates: start: 201110, end: 201112
  10. METHOTREXATE. [Concomitant]
     Active Substance: METHOTREXATE
     Dosage: STRENGTH 10 MG
  11. ENBREL [Suspect]
     Active Substance: ETANERCEPT
     Dosage: 50 MG, ONCE WEEKLY
     Route: 058
     Dates: start: 20121127, end: 201307
  12. OMEPRAZOLE. [Concomitant]
     Active Substance: OMEPRAZOLE
     Dosage: STRENGTH 20 MG
  13. CODEINE [Concomitant]
     Active Substance: CODEINE
     Dosage: UNK
  14. COLTRAX [Concomitant]
     Active Substance: THIOCOLCHICOSIDE
     Dosage: UNK
  15. ENBREL [Suspect]
     Active Substance: ETANERCEPT
     Dosage: 50 MG, ONCE A WEEK
     Route: 065
     Dates: end: 201309
  16. HYDROCHLOROTHIAZIDE. [Concomitant]
     Active Substance: HYDROCHLOROTHIAZIDE
     Dosage: 25 MG, QD
     Route: 048
  17. TRAMAL [Concomitant]
     Active Substance: TRAMADOL
     Dosage: UNK
  18. ENBREL [Suspect]
     Active Substance: ETANERCEPT
     Dosage: 50 MG, ONCE WEEKLY
     Route: 058
     Dates: start: 2012, end: 201211
  19. ENBREL [Suspect]
     Active Substance: ETANERCEPT
     Dosage: UNK
     Route: 058
     Dates: start: 201806
  20. CELEBRA [Concomitant]
     Active Substance: CELECOXIB
     Dosage: UNK

REACTIONS (23)
  - Infection [Unknown]
  - Pyrexia [Recovered/Resolved]
  - Uterine disorder [Unknown]
  - Diabetes mellitus [Unknown]
  - Candida infection [Unknown]
  - Oropharyngeal pain [Unknown]
  - Influenza [Unknown]
  - Pneumonia [Unknown]
  - Diverticulitis [Unknown]
  - Haemorrhage [Unknown]
  - Pain [Unknown]
  - Burning sensation [Unknown]
  - Uterine polyp [Unknown]
  - Blood cholesterol increased [Unknown]
  - Cough [Unknown]
  - Lymphoma [Unknown]
  - Sinusitis [Unknown]
  - Immunosuppression [Not Recovered/Not Resolved]
  - Secretion discharge [Unknown]
  - Herpes zoster [Unknown]
  - Chest pain [Unknown]
  - Tooth infection [Unknown]
  - Mumps [Unknown]

NARRATIVE: CASE EVENT DATE: 201112
